FAERS Safety Report 6046142-9 (Version None)
Quarter: 2009Q1

REPORT INFORMATION
  Report Type: 
  Country: None (occurrence: None)
  Receive Date: 20090121
  Receipt Date: 20090121
  Transmission Date: 20090719
  Serious: Yes (Other)
  Sender: FDA-Public Use
  Company Number: None

PATIENT
  Age: 48 Year
  Sex: Female
  Weight: 74.8435 kg

DRUGS (2)
  1. ASPIRIN [Suspect]
     Dosage: 2 TABLETS 12 HOURS APART PO TWO DAYS
     Route: 048
  2. GINKOBA MEMORY 120 MG SERVING SIZE 3 TABLETS AJG-BI BRANDS LLC ALAN JA [Suspect]
     Dosage: 1 TABLET ONCE PO ONE DAY
     Route: 048

REACTIONS (2)
  - DRUG HYPERSENSITIVITY [None]
  - REACTION TO AZO-DYES [None]
